FAERS Safety Report 23124260 (Version 2)
Quarter: 2023Q4

REPORT INFORMATION
  Report Type: Spontaneous
  Country: US (occurrence: US)
  Receive Date: 20231030
  Receipt Date: 20231110
  Transmission Date: 20240109
  Serious: Yes (Disabling, Other)
  Sender: FDA-Public Use
  Company Number: US-ESPERIONTHERAPEUTICS-2023USA01197

PATIENT
  Sex: Male

DRUGS (1)
  1. NEXLETOL [Suspect]
     Active Substance: BEMPEDOIC ACID
     Indication: Product used for unknown indication
     Dosage: 180 MILLIGRAM
     Route: 048
     Dates: start: 20230925, end: 20230925

REACTIONS (5)
  - Disability [Recovering/Resolving]
  - Muscular weakness [Recovering/Resolving]
  - Pain [Recovering/Resolving]
  - Mobility decreased [Recovering/Resolving]
  - Product dose omission issue [Recovering/Resolving]

NARRATIVE: CASE EVENT DATE: 20230925
